FAERS Safety Report 21843762 (Version 1)
Quarter: 2023Q1

REPORT INFORMATION
  Report Type: Spontaneous
  Country: US (occurrence: None)
  Receive Date: 20230106
  Receipt Date: 20230106
  Transmission Date: 20230418
  Serious: Yes (Other)
  Sender: FDA-Public Use
  Company Number: None

PATIENT
  Age: 27 Year
  Sex: Female

DRUGS (1)
  1. ERYFOTONA AGELESS TINTED MINERAL [Suspect]
     Active Substance: TITANIUM DIOXIDE

REACTIONS (4)
  - Cellulitis [None]
  - Emotional distress [None]
  - Pain [None]
  - Inflammation [None]
